FAERS Safety Report 7031105-7 (Version None)
Quarter: 2010Q4

REPORT INFORMATION
  Report Type: 
  Country: None (occurrence: None)
  Receive Date: 20101006
  Receipt Date: 20100929
  Transmission Date: 20110411
  Serious: Yes (Hospitalization)
  Sender: FDA-Public Use
  Company Number: US-WYE-H17916410

PATIENT
  Sex: Female

DRUGS (1)
  1. RAPAMUNE [Suspect]
     Route: 048

REACTIONS (2)
  - HEART VALVE REPLACEMENT [None]
  - IMPAIRED HEALING [None]
